FAERS Safety Report 8237410-0 (Version None)
Quarter: 2012Q1

REPORT INFORMATION
  Report Type: 
  Country: None (occurrence: None)
  Receive Date: 20120323
  Receipt Date: 20120309
  Transmission Date: 20120608
  Serious: Yes (Other)
  Sender: FDA-Public Use
  Company Number: 2012-00455

PATIENT
  Age: 65 Year
  Sex: Male
  Weight: 86 kg

DRUGS (9)
  1. ISULIN DETEMIR (LEVEMIR) [Concomitant]
  2. OMEPRAZOLE [Concomitant]
  3. CLOPIDOGREL [Concomitant]
  4. LEVOTHYROXINE SODIUM [Concomitant]
  5. ISOSORBIDE (ISOSORBIDE MONONITRATE) [Concomitant]
  6. INSULIN ASPART (NOVORAPID) [Concomitant]
  7. DILTIAZEM HYDROCHLORIDE (TILDIEM LA) [Concomitant]
  8. SIMVASTATIN [Suspect]
     Indication: BLOOD CHOLESTEROL INCREASED
     Dosage: 1 DOSAGE FORMS (1 DOSAGE FORMS, 1 IN D), ORAL
     Route: 048
     Dates: start: 20111212, end: 20120203
  9. NICORANDIL [Concomitant]

REACTIONS (2)
  - PAIN IN EXTREMITY [None]
  - MYALGIA [None]
